FAERS Safety Report 26189873 (Version 1)
Quarter: 2025Q4

REPORT INFORMATION
  Report Type: Spontaneous
  Country: US (occurrence: US)
  Receive Date: 20251223
  Receipt Date: 20251223
  Transmission Date: 20260117
  Serious: No
  Sender: TELIX PHARMACEUTICALS
  Company Number: US-TLX-2025000139

PATIENT
  Sex: Male

DRUGS (1)
  1. GOZELLIX [Suspect]
     Active Substance: GOZETOTIDE
     Indication: Diagnostic procedure
     Dosage: REQUESTED DOSE: 6.0MCI?DISPENSED: 5.9MCI?VOLUME: 6.5ML ?CALIBRATION TIME: 7:45AM
     Route: 040
     Dates: start: 20251121, end: 20251121

REACTIONS (1)
  - Injection site pain [Unknown]

NARRATIVE: CASE EVENT DATE: 20251121
